FAERS Safety Report 16762713 (Version 1)
Quarter: 2019Q3

REPORT INFORMATION
  Report Type: Report from Study
  Country: US (occurrence: US)
  Receive Date: 20190901
  Receipt Date: 20190901
  Transmission Date: 20191005
  Serious: No
  Sender: FDA-Public Use
  Company Number: PHEH2019US036011

PATIENT
  Sex: Female

DRUGS (2)
  1. AFINITOR [Suspect]
     Active Substance: EVEROLIMUS
     Indication: SEIZURE
     Dosage: 5 MG, QD (ONCE DAILY)
     Route: 048
     Dates: start: 20190823
  2. EUCERIN CR?ME (PARAFFIN, LIQUID, PETROLATUM, WOOL FAT) [Suspect]
     Active Substance: LANOLIN\MINERAL OIL\PETROLATUM
     Indication: ANGIOFIBROMA
     Route: 065

REACTIONS (1)
  - Angiofibroma [Unknown]
